FAERS Safety Report 5721416-7 (Version None)
Quarter: 2008Q2

REPORT INFORMATION
  Report Type: 
  Country: None (occurrence: None)
  Receive Date: 20080429
  Receipt Date: 20080424
  Transmission Date: 20081010
  Serious: Yes (Hospitalization)
  Sender: FDA-Public Use
  Company Number: DE-BRISTOL-MYERS SQUIBB COMPANY-14163331

PATIENT
  Age: 52 Year
  Sex: Female
  Weight: 93 kg

DRUGS (8)
  1. CYCLOPHOSPHAMIDE [Suspect]
     Indication: BREAST CANCER
     Route: 042
     Dates: start: 20080312, end: 20080409
  2. PACLITAXEL [Suspect]
     Indication: BREAST CANCER
     Route: 042
     Dates: start: 20080130, end: 20080227
  3. EPIRUBICIN [Suspect]
     Indication: BREAST CANCER
     Route: 042
     Dates: start: 20071217, end: 20080106
  4. PEGFILGRASTIM [Concomitant]
     Route: 058
     Dates: start: 20080313, end: 20080410
  5. NEORECORMON [Concomitant]
     Dosage: 1DOSAGE FORM=30(UNITS NOT SPECIFIED).
     Route: 058
     Dates: start: 20071217, end: 20080403
  6. CIPROFLOXACIN [Concomitant]
     Route: 048
     Dates: start: 20080312, end: 20080423
  7. KEVATRIL [Concomitant]
     Route: 042
     Dates: start: 20071217, end: 20080409
  8. DEXAMETHASONE [Concomitant]
     Route: 042
     Dates: start: 20071217, end: 20080409

REACTIONS (2)
  - FEBRILE NEUTROPENIA [None]
  - NEPHROLITHIASIS [None]
